FAERS Safety Report 9346666 (Version 1)
Quarter: 2013Q2

REPORT INFORMATION
  Report Type: Spontaneous
  Country: US (occurrence: US)
  Receive Date: 20130613
  Receipt Date: 20130613
  Transmission Date: 20140414
  Serious: No
  Sender: FDA-Public Use
  Company Number: US-ASTRAZENECA-2013SE40284

PATIENT
  Age: 73 Year
  Sex: Male
  Weight: 81.6 kg

DRUGS (6)
  1. SYMBICORT [Suspect]
     Indication: ASTHMA
     Dosage: 160/4.5, TWO PUFFS, TWO TIMES A DAY
     Route: 055
     Dates: start: 201304, end: 201304
  2. SYMBICORT [Suspect]
     Indication: CHRONIC OBSTRUCTIVE PULMONARY DISEASE
     Dosage: 160/4.5, TWO PUFFS, TWO TIMES A DAY
     Route: 055
     Dates: start: 201304, end: 201304
  3. SYMBICORT [Suspect]
     Indication: ASTHMA
     Dosage: 160/4.5, TWO PUFFS IN MORNING
     Route: 055
     Dates: start: 201304
  4. SYMBICORT [Suspect]
     Indication: CHRONIC OBSTRUCTIVE PULMONARY DISEASE
     Dosage: 160/4.5, TWO PUFFS IN MORNING
     Route: 055
     Dates: start: 201304
  5. SULFASALAZINE [Concomitant]
     Indication: ARTHRITIS
     Route: 048
     Dates: start: 2003
  6. ALBUTEROL [Concomitant]
     Indication: ASTHMA
     Route: 055

REACTIONS (3)
  - Condition aggravated [Unknown]
  - Intentional drug misuse [Unknown]
  - Circumstance or information capable of leading to medication error [Unknown]
